FAERS Safety Report 12728967 (Version 1)
Quarter: 2016Q3

REPORT INFORMATION
  Report Type: Spontaneous
  Country: FI (occurrence: FI)
  Receive Date: 20160909
  Receipt Date: 20160909
  Transmission Date: 20161109
  Serious: Yes (Life-Threatening, Hospitalization)
  Sender: FDA-Public Use
  Company Number: FI-ELI_LILLY_AND_COMPANY-FI201609002077

PATIENT
  Age: 64 Year
  Sex: Male

DRUGS (9)
  1. LEPONEX [Suspect]
     Active Substance: CLOZAPINE
     Indication: SCHIZOPHRENIA
     Dosage: 700 MG, QD
     Route: 065
     Dates: start: 2006
  2. LEPONEX [Suspect]
     Active Substance: CLOZAPINE
     Dosage: 400 MG, QD
     Route: 065
     Dates: start: 20160803, end: 20160816
  3. PERTRIPTYL [Concomitant]
     Indication: PRODUCT USED FOR UNKNOWN INDICATION
     Dosage: UNK, QD
     Route: 065
  4. LEPONEX [Suspect]
     Active Substance: CLOZAPINE
     Dosage: 25 MG, EACH EVENING
     Route: 065
     Dates: start: 20160706
  5. ABILIFY [Concomitant]
     Active Substance: ARIPIPRAZOLE
     Indication: PRODUCT USED FOR UNKNOWN INDICATION
     Dosage: 15 MG, QD
     Route: 065
  6. ZARZIO [Concomitant]
     Active Substance: FILGRASTIM
     Indication: PRODUCT USED FOR UNKNOWN INDICATION
     Dosage: 48 DF, UNKNOWN
     Route: 065
  7. ZYPADHERA [Suspect]
     Active Substance: OLANZAPINE PAMOATE
     Indication: PRODUCT USED FOR UNKNOWN INDICATION
     Dosage: UNK, UNKNOWN
     Route: 065
  8. SOLIAN [Concomitant]
     Active Substance: AMISULPRIDE
     Indication: PRODUCT USED FOR UNKNOWN INDICATION
     Dosage: 1200 MG, QD
     Route: 065
  9. ZYPADHERA [Suspect]
     Active Substance: OLANZAPINE PAMOATE
     Dosage: 300 MG, 2/M
     Route: 065
     Dates: end: 20160826

REACTIONS (10)
  - Infection [Unknown]
  - Diarrhoea [Unknown]
  - Neutrophil count decreased [Recovered/Resolved]
  - C-reactive protein increased [Unknown]
  - Agranulocytosis [Recovered/Resolved]
  - Body temperature increased [Unknown]
  - Anxiety [Recovering/Resolving]
  - Hallucination, auditory [Recovering/Resolving]
  - White blood cell count decreased [Recovered/Resolved]
  - Insomnia [Unknown]
